FAERS Safety Report 14735854 (Version 4)
Quarter: 2018Q3

REPORT INFORMATION
  Report Type: Spontaneous
  Country: JP (occurrence: JP)
  Receive Date: 20180409
  Receipt Date: 20180827
  Transmission Date: 20181010
  Serious: Yes (Hospitalization, Other)
  Sender: FDA-Public Use
  Company Number: JP-009507513-1804JPN000896J

PATIENT
  Age: 66 Year
  Sex: Male
  Weight: 60 kg

DRUGS (6)
  1. ETODOLAC. [Concomitant]
     Active Substance: ETODOLAC
     Indication: CANCER PAIN
     Dosage: 200 MG, BID
     Route: 048
     Dates: start: 20180109
  2. FLUVASTATIN [Concomitant]
     Active Substance: FLUVASTATIN SODIUM
     Indication: HYPERLIPIDAEMIA
     Dosage: 20 MG, QD
     Route: 048
  3. OXYCODONE [Concomitant]
     Active Substance: OXYCODONE
     Indication: CANCER PAIN
     Dosage: 5 MG, BID
     Route: 048
     Dates: start: 20180109
  4. MAGMITT [Concomitant]
     Active Substance: MAGNESIUM OXIDE
     Indication: CONSTIPATION
     Dosage: 250 MG, TID
     Route: 048
     Dates: start: 20180109
  5. CALONAL [Concomitant]
     Active Substance: ACETAMINOPHEN
     Indication: CANCER PAIN
     Dosage: 500 MG, QD
     Route: 048
     Dates: start: 20180329
  6. KEYTRUDA [Suspect]
     Active Substance: PEMBROLIZUMAB
     Indication: LUNG SQUAMOUS CELL CARCINOMA STAGE IV
     Dosage: 200 MG, Q3W
     Route: 041
     Dates: start: 20180322, end: 20180322

REACTIONS (4)
  - Malignant neoplasm progression [Unknown]
  - Interstitial lung disease [Not Recovered/Not Resolved]
  - Malignant pleural effusion [Recovered/Resolved]
  - Pericarditis malignant [Recovered/Resolved]

NARRATIVE: CASE EVENT DATE: 20180406
